FAERS Safety Report 9882143 (Version 1)
Quarter: 2014Q1

REPORT INFORMATION
  Report Type: Spontaneous
  Country: CA (occurrence: CA)
  Receive Date: 20140207
  Receipt Date: 20140207
  Transmission Date: 20141002
  Serious: Yes (Life-Threatening)
  Sender: FDA-Public Use
  Company Number: PHHY2014CA015346

PATIENT
  Age: 70 Year
  Sex: Female
  Weight: 72.56 kg

DRUGS (6)
  1. MIACALCIN [Suspect]
     Dosage: 1 DF, QD
     Route: 006
  2. ALVESCO [Concomitant]
     Dosage: UNK UKN, UNK
  3. CALCIUM [Concomitant]
     Dosage: UNK UKN, UNK
  4. LOSEC                                   /SWE/ [Concomitant]
     Dosage: UNK UKN, UNK
  5. RANITIDINE [Concomitant]
     Dosage: UNK UKN, UNK
  6. VITAMIN D [Concomitant]
     Dosage: UNK UKN, UNK

REACTIONS (1)
  - Squamous cell carcinoma of skin [Unknown]
